FAERS Safety Report 8282298-5 (Version None)
Quarter: 2012Q2

REPORT INFORMATION
  Report Type: 
  Country: None (occurrence: None)
  Receive Date: 20120413
  Receipt Date: 20120403
  Transmission Date: 20120825
  Serious: Yes (Hospitalization)
  Sender: FDA-Public Use
  Company Number: US-JNJFOC-20120402232

PATIENT
  Sex: Female
  Weight: 22 kg

DRUGS (10)
  1. BUDESONIDE [Concomitant]
  2. PENICILLIN V POTASSIUM [Concomitant]
  3. DEPAKOTE [Concomitant]
  4. CONCERTA [Concomitant]
  5. CLONIDINE [Concomitant]
  6. HUMIRA [Concomitant]
  7. PROTONIX [Concomitant]
  8. ZOFRAN [Concomitant]
  9. MESALAMINE [Concomitant]
     Route: 048
  10. INFLIXIMAB, RECOMBINANT [Suspect]
     Indication: INFLAMMATORY BOWEL DISEASE
     Route: 042
     Dates: start: 20110309

REACTIONS (1)
  - GASTROENTERITIS [None]
